FAERS Safety Report 9816436 (Version 2)
Quarter: 2014Q1

REPORT INFORMATION
  Report Type: Spontaneous
  Country: US (occurrence: US)
  Receive Date: 20140114
  Receipt Date: 20140114
  Transmission Date: 20141002
  Serious: Yes (Death)
  Sender: FDA-Public Use
  Company Number: US-PFIZER INC-2014007611

PATIENT
  Age: 49 Year
  Sex: Female

DRUGS (3)
  1. MORPHINE SULFATE [Suspect]
  2. OXYCODONE HYDROCHLORIDE [Suspect]
  3. ACETYLSALICYLIC ACID/CARISOPRODOL [Suspect]

REACTIONS (1)
  - Drug abuse [Fatal]
